FAERS Safety Report 23857668 (Version 1)
Quarter: 2024Q2

REPORT INFORMATION
  Report Type: Spontaneous
  Country: IT (occurrence: IT)
  Receive Date: 20240515
  Receipt Date: 20240515
  Transmission Date: 20240717
  Serious: Yes (Other)
  Sender: FDA-Public Use
  Company Number: None

PATIENT
  Age: 74 Year
  Sex: Female

DRUGS (3)
  1. BEVACIZUMAB [Suspect]
     Active Substance: BEVACIZUMAB
     Indication: Ovarian cancer
     Dosage: 600 MG
     Route: 042
     Dates: start: 20240111, end: 20240111
  2. CARBOPLATIN [Suspect]
     Active Substance: CARBOPLATIN
     Indication: Ovarian cancer
     Dosage: 300 MILLIGRAM
     Route: 042
     Dates: start: 20240111, end: 20240111
  3. PEMETREXED [Suspect]
     Active Substance: PEMETREXED
     Indication: Ovarian cancer
     Dosage: 250 MILLIGRAM
     Route: 042
     Dates: start: 20240111, end: 20240111

REACTIONS (2)
  - Thrombocytopenia [Recovering/Resolving]
  - Epistaxis [Recovered/Resolved]

NARRATIVE: CASE EVENT DATE: 20240113
